FAERS Safety Report 18225634 (Version 13)
Quarter: 2021Q2

REPORT INFORMATION
  Report Type: Spontaneous
  Country: DE (occurrence: DE)
  Receive Date: 20200903
  Receipt Date: 20210629
  Transmission Date: 20210717
  Serious: Yes (Hospitalization, Other)
  Sender: FDA-Public Use
  Company Number: DE-AUROBINDO-AUR-APL-2020-045766

PATIENT
  Age: 42 Year
  Sex: Female
  Weight: 61 kg

DRUGS (20)
  1. PARACETAMOL [Concomitant]
     Active Substance: ACETAMINOPHEN
     Indication: PRODUCT USED FOR UNKNOWN INDICATION
     Dosage: UNK, 3 TIMES A DAY
     Route: 065
  2. JUBRELE [Concomitant]
     Active Substance: DESOGESTREL
     Indication: PRODUCT USED FOR UNKNOWN INDICATION
     Dosage: UNK
     Route: 065
  3. PANTOPRAZOLE [Concomitant]
     Active Substance: PANTOPRAZOLE
     Indication: PRODUCT USED FOR UNKNOWN INDICATION
     Dosage: 20 MILLIGRAM
     Route: 065
  4. PREGABALIN. [Concomitant]
     Active Substance: PREGABALIN
     Dosage: 600 MILLIGRAM
     Route: 048
     Dates: start: 2019
  5. OXYCODONE [Suspect]
     Active Substance: OXYCODONE
     Dosage: 10 MILLIGRAM, TWO TIMES A DAY(TOGETHER WITH NALOXON )
     Route: 065
     Dates: start: 20210513
  6. CORTISONE [Suspect]
     Active Substance: CORTISONE
     Indication: PRODUCT USED FOR UNKNOWN INDICATION
     Dosage: 1000 MILLIGRAM, 0.33 DAY
     Route: 065
     Dates: start: 20200511
  7. OCREVUS [Suspect]
     Active Substance: OCRELIZUMAB
     Dosage: 600 MILLIGRAM
     Route: 042
     Dates: start: 20200813
  8. AMITRIPTYLINE [Concomitant]
     Active Substance: AMITRIPTYLINE
     Dosage: 25 MILLIGRAM, ONCE A DAY
     Route: 065
  9. PREGABALIN. [Concomitant]
     Active Substance: PREGABALIN
     Indication: PAIN
     Dosage: 100 MILLIGRAM, 0.16 DAY (2?2?2)
     Route: 065
  10. OCREVUS [Suspect]
     Active Substance: OCRELIZUMAB
     Indication: SECONDARY PROGRESSIVE MULTIPLE SCLEROSIS
     Dosage: 300 MILLIGRAM(EVERY 14 DAYS)
     Route: 042
     Dates: start: 20200206, end: 20200220
  11. OCREVUS [Suspect]
     Active Substance: OCRELIZUMAB
     Dosage: 300 MILLIGRAM
     Route: 042
     Dates: start: 20200220
  12. AMITRIPTYLINE [Concomitant]
     Active Substance: AMITRIPTYLINE
     Indication: PAIN
     Dosage: 25 MILLIGRAM, ONCE A DAY
     Route: 048
     Dates: start: 2019
  13. MIRTAZAPINE. [Concomitant]
     Active Substance: MIRTAZAPINE
     Indication: PRODUCT USED FOR UNKNOWN INDICATION
     Dosage: 7.5 MILLIGRAM
     Route: 065
  14. OXYCODONE [Suspect]
     Active Substance: OXYCODONE
     Indication: PAIN
     Dosage: 10 MILLIGRAM
     Route: 065
  15. MOVICOL [Concomitant]
     Active Substance: POLYETHYLENE GLYCOL 3350\POTASSIUM CHLORIDE\SODIUM BICARBONATE\SODIUM CHLORIDE
     Indication: PRODUCT USED FOR UNKNOWN INDICATION
     Dosage: UNK, ONCE A DAY
     Route: 065
  16. COMIRNATY [Suspect]
     Active Substance: TOZINAMERAN
     Indication: COVID-19 IMMUNISATION
     Dosage: UNK
     Route: 065
     Dates: start: 20210428
  17. CORTISONE [Suspect]
     Active Substance: CORTISONE
     Dosage: UNK
     Route: 065
  18. NALOXON [Concomitant]
     Active Substance: NALOXONE HYDROCHLORIDE
     Indication: PRODUCT USED FOR UNKNOWN INDICATION
     Dosage: 5 MILLIGRAM, TWO TIMES A DAY
     Route: 065
  19. PREGABALIN. [Concomitant]
     Active Substance: PREGABALIN
     Dosage: 600 MILLIGRAM
     Route: 065
     Dates: start: 2009
  20. PREGABALIN. [Concomitant]
     Active Substance: PREGABALIN
     Dosage: 200 MILLIGRAM, 0.33 DAY
     Route: 065

REACTIONS (45)
  - Dry skin [Recovering/Resolving]
  - Fungal skin infection [Recovered/Resolved]
  - Photophobia [Recovered/Resolved]
  - Menstruation irregular [Unknown]
  - Dysphagia [Recovered/Resolved]
  - Odynophagia [Recovering/Resolving]
  - Product use in unapproved indication [Unknown]
  - Anal incontinence [Not Recovered/Not Resolved]
  - Sensory disturbance [Not Recovered/Not Resolved]
  - Memory impairment [Unknown]
  - Fatigue [Recovered/Resolved]
  - Chills [Recovered/Resolved]
  - Constipation [Recovered/Resolved]
  - Painful respiration [Recovered/Resolved]
  - Muscle spasms [Not Recovered/Not Resolved]
  - Feeling cold [Recovered/Resolved]
  - Muscle spasticity [Recovered/Resolved]
  - Alopecia [Recovering/Resolving]
  - Tongue movement disturbance [Recovering/Resolving]
  - Urinary incontinence [Recovering/Resolving]
  - Vaginal discharge [Unknown]
  - Mood swings [Recovered/Resolved]
  - Eye pain [Recovering/Resolving]
  - Off label use [Unknown]
  - Multiple sclerosis relapse [Recovered/Resolved]
  - Head discomfort [Recovered/Resolved]
  - Back pain [Recovering/Resolving]
  - Vomiting [Recovered/Resolved]
  - Intentional product use issue [Unknown]
  - Loss of consciousness [Unknown]
  - Musculoskeletal stiffness [Recovered/Resolved]
  - Pain in extremity [Not Recovered/Not Resolved]
  - Coordination abnormal [Recovered/Resolved]
  - Hyperacusis [Recovering/Resolving]
  - Joint range of motion decreased [Recovered/Resolved]
  - Pain [Recovering/Resolving]
  - Dyskinesia [Recovered/Resolved]
  - Ocular discomfort [Recovering/Resolving]
  - Dyspnoea [Recovered/Resolved]
  - Speech disorder [Recovered/Resolved]
  - Muscular weakness [Recovered/Resolved]
  - Cognitive disorder [Not Recovered/Not Resolved]
  - Fatigue [Recovered/Resolved]
  - Headache [Not Recovered/Not Resolved]
  - Irritability [Recovering/Resolving]

NARRATIVE: CASE EVENT DATE: 20200206
